FAERS Safety Report 25704391 (Version 1)
Quarter: 2025Q3

REPORT INFORMATION
  Report Type: Spontaneous
  Country: GB (occurrence: GB)
  Receive Date: 20250820
  Receipt Date: 20250820
  Transmission Date: 20251021
  Serious: Yes (Other)
  Sender: TEVA
  Company Number: None

PATIENT
  Age: 75 Year
  Sex: Female
  Weight: 91 kg

DRUGS (1)
  1. QUININE [Suspect]
     Active Substance: QUININE
     Indication: Muscle spasms
     Route: 065
     Dates: start: 20250710, end: 20250813

REACTIONS (2)
  - Wheezing [Recovering/Resolving]
  - Rash [Recovered/Resolved]

NARRATIVE: CASE EVENT DATE: 20250811
